FAERS Safety Report 7667987-5 (Version None)
Quarter: 2011Q3

REPORT INFORMATION
  Report Type: 
  Country: None (occurrence: None)
  Receive Date: 20110808
  Receipt Date: 20110804
  Transmission Date: 20111222
  Serious: Yes (Other)
  Sender: FDA-Public Use
  Company Number: US-BRISTOL-MYERS SQUIBB COMPANY-15859762

PATIENT
  Age: 21 Year
  Sex: Female
  Weight: 73 kg

DRUGS (1)
  1. ZERIT [Suspect]
     Indication: HIV INFECTION

REACTIONS (4)
  - SUICIDE ATTEMPT [None]
  - LIPOHYPERTROPHY [None]
  - LIPODYSTROPHY ACQUIRED [None]
  - DEPRESSION [None]
